FAERS Safety Report 5742988-2 (Version None)
Quarter: 2008Q2

REPORT INFORMATION
  Report Type: 
  Country: None (occurrence: None)
  Receive Date: 20080519
  Receipt Date: 20080508
  Transmission Date: 20081010
  Serious: Yes (Hospitalization)
  Sender: FDA-Public Use
  Company Number: JP-JNJFOC-20080501832

PATIENT
  Age: 61 Year
  Sex: Female

DRUGS (6)
  1. TOPINA [Suspect]
     Indication: MIGRAINE PROPHYLAXIS
     Route: 048
  2. DEPAKENE [Suspect]
     Indication: MIGRAINE
     Route: 048
  3. DIOVAN [Suspect]
     Indication: HYPERTENSION
     Route: 048
  4. ZOMIG [Suspect]
     Indication: MIGRAINE
     Route: 048
  5. MIGSIS [Suspect]
     Indication: MIGRAINE
     Route: 048
  6. TRYPTANOL [Suspect]
     Indication: MIGRAINE
     Route: 048

REACTIONS (2)
  - HEPATITIS [None]
  - MALAISE [None]
